FAERS Safety Report 13663704 (Version 1)
Quarter: 2017Q2

REPORT INFORMATION
  Report Type: Spontaneous
  Country: US (occurrence: US)
  Receive Date: 20170619
  Receipt Date: 20170619
  Transmission Date: 20170830
  Serious: No
  Sender: FDA-Public Use
  Company Number: US-BRISTOL-MYERS SQUIBB COMPANY-BMS-2017-053249

PATIENT
  Age: 53 Year
  Sex: Female

DRUGS (1)
  1. YERVOY [Suspect]
     Active Substance: IPILIMUMAB
     Indication: MALIGNANT MELANOMA
     Dosage: 10 MG/KG, UNK
     Route: 042
     Dates: start: 20170526

REACTIONS (3)
  - Pruritus generalised [Recovering/Resolving]
  - Prescribed overdose [Unknown]
  - Rash macular [Recovering/Resolving]

NARRATIVE: CASE EVENT DATE: 20170603
